FAERS Safety Report 4508147-6 (Version None)
Quarter: 2004Q4

REPORT INFORMATION
  Report Type: 
  Country: None (occurrence: None)
  Receive Date: 20041123
  Receipt Date: 20031027
  Transmission Date: 20050328
  Serious: Yes (Other)
  Sender: FDA-Public Use
  Company Number: US-GLAXOSMITHKLINE-A0431973A

PATIENT
  Age: 14 Year
  Sex: Female
  Weight: 105.9 kg

DRUGS (1)
  1. WELLBUTRIN [Suspect]
     Dosage: 100MG SEE DOSAGE TEXT
     Route: 048
     Dates: start: 20030820, end: 20031001

REACTIONS (1)
  - CONVULSION [None]
